FAERS Safety Report 19800173 (Version 1)
Quarter: 2021Q3

REPORT INFORMATION
  Report Type: Spontaneous
  Country: US (occurrence: US)
  Receive Date: 20210908
  Receipt Date: 20210908
  Transmission Date: 20211014
  Serious: No
  Sender: FDA-Public Use
  Company Number: US-DRREDDYS-SPO/USA/21/0139730

PATIENT
  Age: 18 Year
  Sex: Male

DRUGS (1)
  1. ZENATANE [Suspect]
     Active Substance: ISOTRETINOIN
     Indication: PRODUCT USED FOR UNKNOWN INDICATION
     Dosage: RMA ISSUE DATE: 09/MARCH/2021 12:03:08 PM, 13/APRIL/2021 5:32:36 PM, 25/MAY/2021 7:47:21 PM, 22/JUNE

REACTIONS (2)
  - Arthritis [Unknown]
  - Joint swelling [Unknown]
